FAERS Safety Report 25317859 (Version 2)
Quarter: 2025Q2

REPORT INFORMATION
  Report Type: Report from Study
  Country: US (occurrence: US)
  Receive Date: 20250515
  Receipt Date: 20250520
  Transmission Date: 20250717
  Serious: No
  Sender: ABBVIE
  Company Number: US-ABBVIE-6276736

PATIENT
  Age: 75 Year
  Sex: Male
  Weight: 74.842 kg

DRUGS (2)
  1. HUMIRA [Suspect]
     Active Substance: ADALIMUMAB
     Indication: Crohn^s disease
     Route: 058
     Dates: start: 20240819, end: 2025
  2. HUMIRA [Suspect]
     Active Substance: ADALIMUMAB
     Dosage: DRUG START DATE- FEB/MAR 2025
     Route: 058
     Dates: start: 2025

REACTIONS (7)
  - Prostatomegaly [Not Recovered/Not Resolved]
  - Abdominal pain [Recovered/Resolved]
  - Diarrhoea [Recovered/Resolved]
  - Nocturia [Not Recovered/Not Resolved]
  - Dysuria [Not Recovered/Not Resolved]
  - Frequent bowel movements [Recovered/Resolved]
  - Urinary retention [Not Recovered/Not Resolved]

NARRATIVE: CASE EVENT DATE: 20240819
